FAERS Safety Report 9023986 (Version 1)
Quarter: 2013Q1

REPORT INFORMATION
  Report Type: Spontaneous
  Country: US (occurrence: US)
  Receive Date: 20130122
  Receipt Date: 20130122
  Transmission Date: 20140127
  Serious: No
  Sender: FDA-Public Use
  Company Number: US-009507513-1301USA008548

PATIENT
  Age: 18 Year
  Sex: Male

DRUGS (5)
  1. SAPHRIS [Suspect]
     Indication: AUTISM
     Dosage: 10 MG, QD
     Route: 060
     Dates: start: 201211
  2. SAPHRIS [Suspect]
     Indication: INSOMNIA
  3. NYSTATIN [Concomitant]
  4. CEFTIN [Concomitant]
  5. FLUVOXAMINE MALEATE [Concomitant]
     Dosage: 150 MG
     Dates: start: 20130108

REACTIONS (6)
  - Logorrhoea [Unknown]
  - Tachyphrenia [Unknown]
  - Muscle twitching [Unknown]
  - Insomnia [Unknown]
  - Insomnia [Unknown]
  - Inappropriate schedule of drug administration [Unknown]
